FAERS Safety Report 9671221 (Version 1)
Quarter: 2013Q4

REPORT INFORMATION
  Report Type: Spontaneous
  Country: US (occurrence: US)
  Receive Date: 20131106
  Receipt Date: 20131106
  Transmission Date: 20140711
  Serious: No
  Sender: FDA-Public Use
  Company Number: US-PFIZER INC-2013314139

PATIENT
  Age: 62 Year
  Sex: Female

DRUGS (8)
  1. METHOTREXATE SODIUM [Suspect]
     Dosage: UNK
  2. ORENCIA [Suspect]
     Dosage: UNK
  3. REMICADE [Suspect]
     Dosage: UNK
  4. CODEINE [Suspect]
     Dosage: UNK
  5. RITUXAN [Suspect]
     Dosage: UNK
  6. NIACIN [Suspect]
     Dosage: UNK
  7. PERCOCET [Suspect]
     Dosage: UNK
  8. BENTYL [Suspect]
     Dosage: UNK

REACTIONS (1)
  - Drug hypersensitivity [Unknown]
